FAERS Safety Report 21122959 (Version 3)
Quarter: 2023Q1

REPORT INFORMATION
  Report Type: Spontaneous
  Country: US (occurrence: US)
  Receive Date: 20220724
  Receipt Date: 20230217
  Transmission Date: 20230418
  Serious: Yes (Other)
  Sender: FDA-Public Use
  Company Number: TU22-1135780

PATIENT
  Age: 83 Year
  Sex: Female

DRUGS (2)
  1. OXYBUTYNIN [Suspect]
     Active Substance: OXYBUTYNIN
     Indication: Hypertonic bladder
     Dosage: 4 MILLIGRAM DAILY;
     Route: 048
  2. ZETIA [Concomitant]
     Active Substance: EZETIMIBE
     Indication: Product used for unknown indication

REACTIONS (2)
  - Confusional state [Recovered/Resolved]
  - Amnesia [Recovered/Resolved]
